FAERS Safety Report 5443693-2 (Version None)
Quarter: 2007Q3

REPORT INFORMATION
  Report Type: 
  Country: None (occurrence: None)
  Receive Date: 20070905
  Receipt Date: 20070824
  Transmission Date: 20080115
  Serious: Yes (Life-Threatening, Hospitalization)
  Sender: FDA-Public Use
  Company Number: US-KINGPHARMUSA00001-K200701087

PATIENT

DRUGS (11)
  1. ALTACE [Suspect]
     Dosage: 10 MG, QD
     Route: 048
     Dates: start: 20060601, end: 20070618
  2. ALTACE [Interacting]
     Dates: start: 20070627
  3. TERALITHE SR [Interacting]
     Indication: BIPOLAR DISORDER
     Dosage: 400 MG, BID
     Route: 048
     Dates: start: 20060601, end: 20070618
  4. TERALITHE SR [Interacting]
     Dosage: REDUCED DAILY DOSE
     Dates: start: 20070627
  5. LASILIX /00032601/ [Interacting]
     Dosage: 40 MG, QD
     Route: 048
     Dates: start: 20070522, end: 20070618
  6. QUITAXON [Concomitant]
     Dosage: 100 MG, UNK
     Route: 048
     Dates: start: 20060601, end: 20070618
  7. KARDEGIC  /00002703/ [Concomitant]
     Route: 048
     Dates: start: 20060620
  8. NORDAZ [Concomitant]
     Dosage: 7.5 MG, UNK
     Route: 048
     Dates: start: 20060620
  9. FLUIDABAK [Concomitant]
     Route: 047
     Dates: start: 20060620
  10. TAHOR [Concomitant]
     Route: 048
     Dates: start: 20060620
  11. SECTRAL [Concomitant]
     Dosage: UNK, BID
     Route: 048
     Dates: start: 20070601, end: 20070618

REACTIONS (16)
  - ALTERED STATE OF CONSCIOUSNESS [None]
  - ANTIPSYCHOTIC DRUG LEVEL INCREASED [None]
  - CARDIAC FAILURE [None]
  - COMA [None]
  - CONFUSIONAL STATE [None]
  - DISTURBANCE IN ATTENTION [None]
  - DRUG INTERACTION [None]
  - GENERAL PHYSICAL HEALTH DETERIORATION [None]
  - HYPERCAPNIA [None]
  - HYPOXIA [None]
  - MYOCLONUS [None]
  - PNEUMONITIS [None]
  - RESPIRATORY ACIDOSIS [None]
  - RESPIRATORY FAILURE [None]
  - TOXIC ENCEPHALOPATHY [None]
  - URINARY TRACT INFECTION [None]
